FAERS Safety Report 8534279-1 (Version None)
Quarter: 2012Q3

REPORT INFORMATION
  Report Type: 
  Country: None (occurrence: None)
  Receive Date: 20120724
  Receipt Date: 20120717
  Transmission Date: 20120928
  Serious: Yes (Hospitalization)
  Sender: FDA-Public Use
  Company Number: DE-BRISTOL-MYERS SQUIBB COMPANY-16528531

PATIENT
  Age: 86 Year
  Sex: Male
  Weight: 90 kg

DRUGS (6)
  1. HYDROXYUREA [Suspect]
     Indication: MYELOPROLIFERATIVE DISORDER
     Dosage: 1DF:1 TAB ONCE DAILY
     Dates: start: 20111214, end: 20120416
  2. ASPIRIN [Concomitant]
     Indication: CEREBROVASCULAR ACCIDENT
     Dosage: TAB
  3. ALLOPURINOL [Concomitant]
     Indication: HYPERURICAEMIA
     Dosage: TAB
  4. TORSEMIDE [Concomitant]
     Indication: CARDIAC FAILURE
     Dosage: TABS
  5. ACC 200 [Concomitant]
  6. COTRIM [Concomitant]
     Dosage: COTRIM 20

REACTIONS (1)
  - PNEUMONIA [None]
